FAERS Safety Report 4350317-4 (Version None)
Quarter: 2004Q2

REPORT INFORMATION
  Report Type: 
  Country: None (occurrence: None)
  Receive Date: 20040427
  Receipt Date: 20040419
  Transmission Date: 20050107
  Serious: Yes (Death)
  Sender: FDA-Public Use
  Company Number: USA-2004-0014652

PATIENT
  Age: 53 Year
  Sex: Male
  Weight: 82.1 kg

DRUGS (5)
  1. OXYCODONE HCL [Suspect]
  2. ETHANOL (ETHANOL) [Suspect]
  3. ALPRAZOLAM [Suspect]
  4. DIAZEPAM [Suspect]
  5. VENLAFAXINE HCL [Suspect]

REACTIONS (25)
  - ACCIDENT [None]
  - ACCIDENTAL OVERDOSE [None]
  - ACUTE MYOCARDIAL INFARCTION [None]
  - ALCOHOL POISONING [None]
  - AORTIC ATHEROSCLEROSIS [None]
  - AORTIC THROMBOSIS [None]
  - AORTIC VALVE DISEASE [None]
  - BENIGN PROSTATIC HYPERPLASIA [None]
  - BRAIN CONTUSION [None]
  - CARDIAC DISORDER [None]
  - CARDIOMEGALY [None]
  - CEREBRAL ATHEROSCLEROSIS [None]
  - CHOLECYSTITIS CHRONIC [None]
  - CHOLELITHIASIS [None]
  - CORONARY ARTERY ATHEROSCLEROSIS [None]
  - DRUG TOXICITY [None]
  - HEAD INJURY [None]
  - HYPERADRENOCORTICISM [None]
  - HYPERTENSIVE CARDIOMYOPATHY [None]
  - HYPERTROPHIC CARDIOMYOPATHY [None]
  - MULTIPLE DRUG OVERDOSE [None]
  - NECROSIS [None]
  - RENAL ARTERIOSCLEROSIS [None]
  - SKIN GRAFT [None]
  - THERMAL BURN [None]
